FAERS Safety Report 25097415 (Version 1)
Quarter: 2025Q1

REPORT INFORMATION
  Report Type: Spontaneous
  Country: CN (occurrence: CN)
  Receive Date: 20250320
  Receipt Date: 20250320
  Transmission Date: 20250409
  Serious: Yes (Hospitalization, Other)
  Sender: RANBAXY
  Company Number: CN-SUN PHARMACEUTICAL INDUSTRIES LTD-2025R1-499033

PATIENT
  Age: 80 Year
  Sex: Male

DRUGS (4)
  1. DILTIAZEM [Interacting]
     Active Substance: DILTIAZEM
     Indication: Prophylaxis
     Route: 065
  2. METOPROLOL [Interacting]
     Active Substance: METOPROLOL
     Indication: Prophylaxis
     Route: 065
  3. IVABRADINE [Interacting]
     Active Substance: IVABRADINE
     Indication: Coronary artery disease
     Route: 065
  4. NIRMATRELVIR\RITONAVIR [Interacting]
     Active Substance: NIRMATRELVIR\RITONAVIR
     Indication: COVID-19
     Route: 048

REACTIONS (3)
  - Bradycardia [Unknown]
  - Drug interaction [Unknown]
  - Hypotension [Unknown]
